FAERS Safety Report 6637001-9 (Version None)
Quarter: 2010Q1

REPORT INFORMATION
  Report Type: 
  Country: None (occurrence: None)
  Receive Date: 20100316
  Receipt Date: 20100304
  Transmission Date: 20100710
  Serious: Yes (Hospitalization, Disabling, Other)
  Sender: FDA-Public Use
  Company Number: US-ELI_LILLY_AND_COMPANY-US200911006138

PATIENT
  Sex: Male
  Weight: 102.4 kg

DRUGS (4)
  1. ZYPREXA [Suspect]
     Dosage: 10 MG, 4/D
     Dates: start: 20000101, end: 20030601
  2. CLONAZEPAM [Concomitant]
     Dosage: 1 MG, 4/D
  3. ZIPRASIDONE HCL [Concomitant]
     Dosage: 200 MG, UNK
     Dates: start: 20050101
  4. TENORMIN [Concomitant]
     Dosage: 100 MG, DAILY (1/D)
     Dates: start: 20000101

REACTIONS (10)
  - DIABETIC COMA [None]
  - DIABETIC KETOACIDOSIS [None]
  - GLYCOSURIA [None]
  - HYPERGLYCAEMIA [None]
  - HYPERINSULINISM [None]
  - HYPOGLYCAEMIA [None]
  - INSULIN RESISTANCE [None]
  - OVERDOSE [None]
  - TYPE 2 DIABETES MELLITUS [None]
  - WEIGHT INCREASED [None]
